FAERS Safety Report 15555255 (Version 1)
Quarter: 2018Q4

REPORT INFORMATION
  Report Type: Spontaneous
  Country: CA (occurrence: CA)
  Receive Date: 20181026
  Receipt Date: 20181026
  Transmission Date: 20190205
  Serious: Yes (Hospitalization, Other)
  Sender: FDA-Public Use
  Company Number: CA-APOTEX-2018AP023181

PATIENT
  Age: 16 Year
  Sex: Female
  Weight: 76 kg

DRUGS (4)
  1. NAPROXEN. [Suspect]
     Active Substance: NAPROXEN
     Indication: PRODUCT USED FOR UNKNOWN INDICATION
     Dosage: 250 DF, UNK 55 G IN TOTAL
     Route: 048
  2. PRAZOSIN. [Suspect]
     Active Substance: PRAZOSIN
     Indication: NIGHTMARE
     Dosage: 55 DF, UNK 110 MG IN TOTAL
     Route: 048
  3. ACETAMINOPHEN. [Suspect]
     Active Substance: ACETAMINOPHEN
     Indication: PRODUCT USED FOR UNKNOWN INDICATION
     Dosage: 500 MG, 325 TABLETS
     Route: 048
  4. ACETAMINOPHEN. [Suspect]
     Active Substance: ACETAMINOPHEN
     Dosage: 72 DF, SINGLE
     Route: 048

REACTIONS (12)
  - Electrocardiogram QT prolonged [Recovered/Resolved]
  - Drug interaction [Unknown]
  - Metabolic acidosis [Recovered/Resolved]
  - Overdose [Unknown]
  - Somnolence [Recovered/Resolved]
  - Depressed level of consciousness [Recovered/Resolved]
  - Toxicity to various agents [Unknown]
  - Hypotension [Recovered/Resolved]
  - Hepatic function abnormal [Recovered/Resolved]
  - Altered state of consciousness [Recovered/Resolved]
  - Vomiting [Recovered/Resolved]
  - Sinus tachycardia [Recovered/Resolved]
